FAERS Safety Report 18499321 (Version 1)
Quarter: 2020Q4

REPORT INFORMATION
  Report Type: Spontaneous
  Country: US (occurrence: US)
  Receive Date: 20201113
  Receipt Date: 20201113
  Transmission Date: 20210114
  Serious: Yes (Death)
  Sender: FDA-Public Use
  Company Number: US-ROCHE-2713679

PATIENT
  Age: 91 Year
  Sex: Female

DRUGS (1)
  1. ERIVEDGE [Suspect]
     Active Substance: VISMODEGIB
     Indication: SKIN CANCER
     Dosage: ONGOING:UNKNOWN
     Route: 048
     Dates: start: 20200917

REACTIONS (1)
  - Death [Fatal]

NARRATIVE: CASE EVENT DATE: 20201026
